FAERS Safety Report 8236776-5 (Version None)
Quarter: 2012Q1

REPORT INFORMATION
  Report Type: 
  Country: None (occurrence: None)
  Receive Date: 20120327
  Receipt Date: 20120316
  Transmission Date: 20120608
  Serious: Yes (Hospitalization)
  Sender: FDA-Public Use
  Company Number: US-JNJFOC-20120308486

PATIENT

DRUGS (3)
  1. REMICADE [Suspect]
     Route: 042
     Dates: start: 20120301
  2. REMICADE [Suspect]
     Route: 042
     Dates: start: 20100401
  3. REMICADE [Suspect]
     Indication: PRODUCT USED FOR UNKNOWN INDICATION
     Route: 042
     Dates: start: 20110401

REACTIONS (3)
  - CELLULITIS [None]
  - INFECTION [None]
  - TRANSIENT ISCHAEMIC ATTACK [None]
